FAERS Safety Report 5460782-7 (Version None)
Quarter: 2007Q3

REPORT INFORMATION
  Report Type: 
  Country: None (occurrence: None)
  Receive Date: 20070919
  Receipt Date: 20070913
  Transmission Date: 20080115
  Serious: Yes (Hospitalization)
  Sender: FDA-Public Use
  Company Number: GB-BOEHRINGER INGELHEIM PHARMACEUTICALS, INC.-2002-UK-00486UK

PATIENT
  Sex: Female

DRUGS (7)
  1. SPIRIVA [Suspect]
     Indication: CHRONIC OBSTRUCTIVE PULMONARY DISEASE
     Dosage: 1 CAPSULE INHALED DAILY
     Route: 055
     Dates: start: 20021014
  2. COMBIVENT [Suspect]
     Indication: CHRONIC OBSTRUCTIVE PULMONARY DISEASE
     Dosage: 4 PUFFS DAILY
     Route: 055
     Dates: end: 20021025
  3. OMEPRAZOLE [Concomitant]
     Dosage: 20MG ONCE DAILY
     Route: 048
  4. ZIMOVANE [Concomitant]
     Indication: INSOMNIA
     Dosage: 7.5MG NOCTE
     Route: 048
  5. PREDNISOLONE [Concomitant]
     Indication: CHRONIC OBSTRUCTIVE PULMONARY DISEASE
     Dosage: 5MG DAILY
     Route: 048
  6. TRAMADOL HCL [Concomitant]
     Indication: BACK PAIN
     Dosage: 300MG DAILY
     Route: 048
     Dates: start: 20020801
  7. PHYLLOCONTIN [Concomitant]
     Indication: CHRONIC OBSTRUCTIVE PULMONARY DISEASE
     Dosage: 225MG TWICE DAILY
     Route: 048

REACTIONS (1)
  - GRAND MAL CONVULSION [None]
